FAERS Safety Report 9940296 (Version 1)
Quarter: 2014Q1

REPORT INFORMATION
  Report Type: Spontaneous
  Country: US (occurrence: US)
  Receive Date: 20140303
  Receipt Date: 20140303
  Transmission Date: 20141002
  Serious: No
  Sender: FDA-Public Use
  Company Number: US-ABBVIE-13P-163-1036413-00

PATIENT
  Sex: 0

DRUGS (1)
  1. HUMIRA [Suspect]
     Indication: PRODUCT USED FOR UNKNOWN INDICATION
     Dates: start: 201207

REACTIONS (14)
  - Paraesthesia [Unknown]
  - Dry throat [Unknown]
  - Pharyngeal erythema [Unknown]
  - Oral mucosal blistering [Unknown]
  - Oesophageal pain [Unknown]
  - Tremor [Unknown]
  - Neck pain [Unknown]
  - Musculoskeletal pain [Unknown]
  - Non-cardiac chest pain [Unknown]
  - Ear pain [Unknown]
  - Tinnitus [Unknown]
  - Toothache [Unknown]
  - Pain in jaw [Unknown]
  - Headache [Unknown]
